FAERS Safety Report 8818992 (Version 1)
Quarter: 2012Q4

REPORT INFORMATION
  Report Type: Spontaneous
  Country: CN (occurrence: None)
  Receive Date: 20121003
  Receipt Date: 20121003
  Transmission Date: 20130627
  Serious: Yes (Hospitalization)
  Sender: FDA-Public Use
  Company Number: DSA_59909_2012

PATIENT
  Age: 39 Year
  Sex: Male

DRUGS (3)
  1. FLUOROURACIL (FLUOROURACIL) [Suspect]
     Indication: HEAD AND NECK CANCER
     Dosage: (DF, every cycle intravenous (not otherwise specified))
     Dates: start: 20120914
  2. PLATINOL [Suspect]
     Indication: HEAD AND NECK CANCER
     Dosage: (DF, every cycle intravenous (not otherwise specified))
     Dates: start: 20120914
  3. DOCETAXEL [Suspect]
     Indication: HEAD AND NECK CANCER
     Dosage: (DF, every cycle intravenous (not otherwise specified))
     Dates: start: 20120914

REACTIONS (6)
  - Fatigue [None]
  - Abdominal pain upper [None]
  - Constipation [None]
  - Flatulence [None]
  - Oral pain [None]
  - Decreased appetite [None]
